FAERS Safety Report 19620376 (Version 2)
Quarter: 2021Q4

REPORT INFORMATION
  Report Type: Other
  Country: US (occurrence: None)
  Receive Date: 20210728
  Receipt Date: 20211110
  Transmission Date: 20220303
  Serious: Yes (Hospitalization, Other)
  Sender: FDA-Public Use
  Company Number: US-ROCHE-2873203

PATIENT
  Sex: Female

DRUGS (2)
  1. ACTEMRA [Suspect]
     Active Substance: TOCILIZUMAB
     Indication: Giant cell arteritis
     Route: 058
  2. ACTEMRA [Suspect]
     Active Substance: TOCILIZUMAB

REACTIONS (7)
  - Breast cancer [Unknown]
  - Gastroenteritis viral [Unknown]
  - Cerebral disorder [Unknown]
  - Somnolence [Unknown]
  - Malaise [Unknown]
  - Impaired reasoning [Unknown]
  - Muscle twitching [Unknown]
